FAERS Safety Report 6482620-6 (Version None)
Quarter: 2009Q4

REPORT INFORMATION
  Report Type: 
  Country: None (occurrence: None)
  Receive Date: 20091209
  Receipt Date: 20091130
  Transmission Date: 20100525
  Serious: Yes (Hospitalization)
  Sender: FDA-Public Use
  Company Number: US-BIOGENIDEC-2009BI030857

PATIENT
  Age: 67 Year
  Sex: Female

DRUGS (3)
  1. TYSABRI [Suspect]
     Indication: MULTIPLE SCLEROSIS
     Route: 042
     Dates: start: 20080529, end: 20081211
  2. PLAVIX [Concomitant]
  3. LASIX [Concomitant]

REACTIONS (2)
  - PNEUMONIA [None]
  - URINARY TRACT INFECTION [None]
